FAERS Safety Report 7692107-0 (Version None)
Quarter: 2011Q3

REPORT INFORMATION
  Report Type: 
  Country: None (occurrence: None)
  Receive Date: 20110818
  Receipt Date: 20110815
  Transmission Date: 20111222
  Serious: Yes (Other)
  Sender: FDA-Public Use
  Company Number: US-ABBOTT-10P-163-0661152-00

PATIENT
  Sex: Female
  Weight: 78.542 kg

DRUGS (28)
  1. HUMIRA [Suspect]
     Indication: RHEUMATOID ARTHRITIS
     Route: 050
     Dates: start: 20091015, end: 20091101
  2. PREDNISONE [Concomitant]
     Route: 048
     Dates: start: 20100213, end: 20100223
  3. PREDNISONE [Concomitant]
     Route: 048
     Dates: start: 20100224, end: 20100224
  4. RHOGAM [Concomitant]
     Indication: RHESUS INCOMPATIBILITY
     Route: 050
     Dates: start: 20100416, end: 20100416
  5. VITAMIN D [Concomitant]
     Indication: VITAMIN D
     Route: 048
     Dates: start: 20091015, end: 20100415
  6. LIQUOR [Concomitant]
     Indication: PRODUCT USED FOR UNKNOWN INDICATION
     Dosage: 1 MIXED DRINK W/2 SHOTS
     Dates: start: 20091107, end: 20091107
  7. PREDNISONE [Concomitant]
     Route: 048
     Dates: start: 20100225, end: 20100421
  8. IMURAN [Concomitant]
     Route: 048
     Dates: start: 20100525, end: 20100716
  9. CYCLOBENZAPRINE [Concomitant]
     Indication: PULMONARY OEDEMA
     Route: 048
     Dates: start: 20100503, end: 20100506
  10. OMEPRAZOLE [Concomitant]
     Indication: DYSPEPSIA
     Route: 048
     Dates: start: 20100328, end: 20100716
  11. CELEBREX [Concomitant]
     Indication: RHEUMATOID ARTHRITIS
     Route: 048
     Dates: start: 20091015, end: 20091115
  12. VITAMIN D [Concomitant]
     Indication: PRODUCT USED FOR UNKNOWN INDICATION
     Route: 048
     Dates: start: 20100416, end: 20100716
  13. COFFEE [Concomitant]
     Indication: PRODUCT USED FOR UNKNOWN INDICATION
     Dosage: 1 SERVING
     Dates: start: 20091015, end: 20100716
  14. PREDNISONE [Concomitant]
     Route: 048
     Dates: start: 20100127, end: 20100131
  15. PREDNISONE [Concomitant]
     Route: 048
     Dates: start: 20100422, end: 20100424
  16. IMURAN [Concomitant]
     Indication: RHEUMATOID ARTHRITIS
     Route: 048
     Dates: start: 20100430, end: 20100509
  17. MULTI-VITAMINS [Concomitant]
     Indication: PRODUCT USED FOR UNKNOWN INDICATION
     Dosage: 4 PILLS IN 1 DAY
     Route: 048
     Dates: start: 20091015, end: 20100716
  18. PREDNISONE [Concomitant]
     Route: 048
     Dates: start: 20091214, end: 20100106
  19. PREDNISONE [Concomitant]
     Indication: RHEUMATOID ARTHRITIS
     Route: 048
     Dates: start: 20091015, end: 20091123
  20. PREDNISONE [Concomitant]
     Route: 048
     Dates: start: 20100121, end: 20100125
  21. VITAMIN D [Concomitant]
     Route: 048
     Dates: start: 20100416, end: 20100716
  22. PREDNISONE [Concomitant]
     Dosage: 25-30 MG
     Route: 048
     Dates: start: 20100426, end: 20100716
  23. ENBREL [Suspect]
     Indication: RHEUMATOID ARTHRITIS
     Route: 050
     Dates: start: 20100224, end: 20100412
  24. FOLIC ACID [Concomitant]
     Indication: PRODUCT USED FOR UNKNOWN INDICATION
     Route: 048
     Dates: start: 20091115, end: 20100403
  25. H1N1 2009 INFLUENZA VACCINE NOS [Concomitant]
     Indication: INFLUENZA IMMUNISATION
     Route: 050
     Dates: start: 20091214, end: 20091214
  26. MYLANTA [Concomitant]
     Indication: DYSPEPSIA
     Route: 048
     Dates: start: 20100301, end: 20100325
  27. IMURAN [Concomitant]
     Route: 048
     Dates: start: 20100510, end: 20100524
  28. TYLENOL-500 [Concomitant]
     Indication: ARTHRALGIA
     Dosage: 2 PILLS TOTAL
     Route: 048
     Dates: start: 20100520, end: 20100527

REACTIONS (6)
  - UTERINE INFECTION [None]
  - CHORIOAMNIONITIS [None]
  - RESPIRATORY TRACT INFECTION [None]
  - PULMONARY OEDEMA [None]
  - VASCULITIS [None]
  - FUNISITIS [None]
